FAERS Safety Report 15334969 (Version 2)
Quarter: 2018Q3

REPORT INFORMATION
  Report Type: Report from Study
  Country: MX (occurrence: MX)
  Receive Date: 20180830
  Receipt Date: 20180917
  Transmission Date: 20181010
  Serious: Yes (Hospitalization)
  Sender: FDA-Public Use
  Company Number: PHHY2018MX081280

PATIENT
  Age: 79 Year
  Sex: Male
  Weight: 60 kg

DRUGS (5)
  1. PREDNISONE. [Concomitant]
     Active Substance: PREDNISONE
     Indication: CARDIAC FAILURE
     Dosage: 1.5 DF, BID (ONE IN MORNING HALF AT NIGHT)
     Route: 048
     Dates: start: 20180830
  2. GALVUS MET [Suspect]
     Active Substance: METFORMIN HYDROCHLORIDE\VILDAGLIPTIN
     Indication: DIABETES MELLITUS
     Dosage: 1 DF (50 MG VILDAGLIPTIN, 850 MG METFORMIN HYDROCHLORIDE), BID
     Route: 048
  3. FUROSEMIDE. [Concomitant]
     Active Substance: FUROSEMIDE
     Indication: CARDIAC FAILURE
     Dosage: 1 DF, QD
     Route: 048
     Dates: start: 20180811
  4. SPIRONOLACTONE. [Concomitant]
     Active Substance: SPIRONOLACTONE
     Indication: CARDIAC FAILURE
     Dosage: 1 DF, QD
     Route: 048
     Dates: start: 20180811
  5. GALVUS MET [Suspect]
     Active Substance: METFORMIN HYDROCHLORIDE\VILDAGLIPTIN
     Dosage: 1 DF (50 MG VILDAGLIPTIN, 850 MG METFORMIN HYDROCHLORIDE), BID
     Route: 048
     Dates: start: 20180811

REACTIONS (2)
  - Pneumonia [Recovering/Resolving]
  - Ischaemic cardiomyopathy [Recovering/Resolving]

NARRATIVE: CASE EVENT DATE: 20180811
